FAERS Safety Report 18635799 (Version 1)
Quarter: 2020Q4

REPORT INFORMATION
  Report Type: Spontaneous
  Country: US (occurrence: US)
  Receive Date: 20201218
  Receipt Date: 20201218
  Transmission Date: 20210114
  Serious: No
  Sender: FDA-Public Use
  Company Number: US-TEVA-2020-US-1859990

PATIENT
  Sex: Female

DRUGS (1)
  1. LEVALBUTEROL TARTRATE HFA INHALER [Suspect]
     Active Substance: LEVALBUTEROL TARTRATE
     Route: 065

REACTIONS (3)
  - Device malfunction [Unknown]
  - Feeling abnormal [Unknown]
  - Device delivery system issue [Unknown]
